FAERS Safety Report 7731513-2 (Version None)
Quarter: 2011Q3

REPORT INFORMATION
  Report Type: 
  Country: None (occurrence: None)
  Receive Date: 20110906
  Receipt Date: 20110608
  Transmission Date: 20111222
  Serious: No
  Sender: FDA-Public Use
  Company Number: US-AMGEN-USASP2011026457

PATIENT
  Age: 80 Year
  Sex: Female

DRUGS (10)
  1. VITAMIN D [Concomitant]
     Dosage: 1 IU, QD
  2. ACIDOPHILUS [Concomitant]
  3. POTASSIUM [Concomitant]
     Dosage: UNK UNK, QD
  4. VITAMIN C                          /00008001/ [Concomitant]
  5. COUMADIN [Concomitant]
     Dosage: 1 MG, QD
  6. FUROSEMIDE [Concomitant]
  7. ATENOLOL [Concomitant]
     Dosage: 1 MG, QD
  8. CALCIUM CARBONATE [Concomitant]
  9. PROLIA [Suspect]
     Indication: OSTEOPOROSIS POSTMENOPAUSAL
     Dosage: 60 MG, Q6MO
     Dates: start: 20110115
  10. DIOVAN [Concomitant]
     Dosage: 1 MG, QD

REACTIONS (4)
  - MUSCLE SPASMS [None]
  - MUSCLE DISORDER [None]
  - BURNING SENSATION [None]
  - TENDON DISORDER [None]
